FAERS Safety Report 10006477 (Version 1)
Quarter: 2014Q1

REPORT INFORMATION
  Report Type: Spontaneous
  Country: US (occurrence: None)
  Receive Date: 20140311
  Receipt Date: 20140311
  Transmission Date: 20141002
  Serious: Yes (Other)
  Sender: FDA-Public Use
  Company Number: AUR-APL-2014-02435

PATIENT
  Age: 37 Year
  Sex: Male

DRUGS (3)
  1. FLUOXETINE [Suspect]
     Indication: PRODUCT USED FOR UNKNOWN INDICATION
     Route: 048
  2. CLOMIPRAMINE (CLOMIPRAMINE) [Concomitant]
  3. RISPERIDONE (RISPERIDONE) [Concomitant]

REACTIONS (4)
  - Ill-defined disorder [None]
  - Diarrhoea [None]
  - Drug ineffective [None]
  - Sexual dysfunction [None]
